FAERS Safety Report 5397173-3 (Version None)
Quarter: 2007Q3

REPORT INFORMATION
  Report Type: 
  Country: None (occurrence: None)
  Receive Date: 20070725
  Receipt Date: 20070713
  Transmission Date: 20080115
  Serious: Yes (Hospitalization)
  Sender: FDA-Public Use
  Company Number: JP-PFIZER INC-2007054838

PATIENT
  Sex: Male

DRUGS (4)
  1. CONAN [Suspect]
     Indication: HYPERTENSION
     Dosage: DAILY DOSE:10MG-FREQ:DAILY
     Route: 048
     Dates: start: 20070528, end: 20070608
  2. OMEPRAZOLE [Suspect]
     Indication: REFLUX OESOPHAGITIS
     Dosage: DAILY DOSE:20MG-FREQ:DAILY
     Route: 048
     Dates: start: 20070426, end: 20070608
  3. TENORMIN [Suspect]
     Indication: HYPERTENSION
     Dosage: DAILY DOSE:50MG-FREQ:DAILY
     Route: 048
     Dates: start: 20070427, end: 20070608
  4. LASIX [Suspect]
     Indication: HYPERTENSION
     Dosage: DAILY DOSE:20MG-FREQ:DAILY
     Route: 048
     Dates: start: 20070528, end: 20070608

REACTIONS (4)
  - BLOOD PRESSURE INCREASED [None]
  - DEHYDRATION [None]
  - DRUG INEFFECTIVE [None]
  - RENAL FAILURE ACUTE [None]
